FAERS Safety Report 10918088 (Version 2)
Quarter: 2017Q3

REPORT INFORMATION
  Report Type: Spontaneous
  Country: US (occurrence: US)
  Receive Date: 20150316
  Receipt Date: 20170914
  Transmission Date: 20171127
  Serious: Yes (Hospitalization)
  Sender: FDA-Public Use
  Company Number: US-ASTELLAS-2014US018988

PATIENT
  Age: 84 Year
  Sex: Male

DRUGS (3)
  1. XTANDI [Suspect]
     Active Substance: ENZALUTAMIDE
     Route: 048
     Dates: start: 20170103
  2. XTANDI [Suspect]
     Active Substance: ENZALUTAMIDE
     Indication: PROSTATE CANCER
     Route: 048
     Dates: start: 20141104, end: 20141201
  3. FENTANYL. [Concomitant]
     Active Substance: FENTANYL
     Indication: PRODUCT USED FOR UNKNOWN INDICATION
     Dosage: UNK UNK, UNKNOWN FREQ.
     Route: 065

REACTIONS (17)
  - Dizziness [Unknown]
  - Pruritus [Not Recovered/Not Resolved]
  - Foreign body in respiratory tract [Unknown]
  - Peripheral swelling [Unknown]
  - Throat irritation [Unknown]
  - Joint swelling [Not Recovered/Not Resolved]
  - Dry skin [Not Recovered/Not Resolved]
  - Oropharyngeal pain [Unknown]
  - Cough [Unknown]
  - Diarrhoea [Recovering/Resolving]
  - Malaise [Recovered/Resolved]
  - Dysphagia [Unknown]
  - Fatigue [Recovering/Resolving]
  - Diarrhoea [Unknown]
  - Pneumonia [Unknown]
  - Decreased appetite [Unknown]
  - Productive cough [Unknown]

NARRATIVE: CASE EVENT DATE: 20141208
